FAERS Safety Report 4700834-X (Version None)
Quarter: 2005Q2

REPORT INFORMATION
  Report Type: 
  Country: None (occurrence: None)
  Receive Date: 20050628
  Receipt Date: 20050601
  Transmission Date: 20051028
  Serious: Yes (Death, Hospitalization)
  Sender: FDA-Public Use
  Company Number: JP-SANOFI-SYNTHELABO-A01200503987

PATIENT
  Age: 44 Year
  Sex: Male

DRUGS (7)
  1. MYSLEE [Suspect]
     Indication: SLEEP DISORDER
     Dosage: 10 MG
     Route: 065
     Dates: end: 20030825
  2. ALPRAZOLAM [Suspect]
     Indication: GENERALISED ANXIETY DISORDER
     Dosage: 2.4 MG
     Route: 065
     Dates: end: 20030825
  3. DEPAS [Suspect]
     Indication: GENERALISED ANXIETY DISORDER
     Dosage: 1.5 MG
     Route: 065
     Dates: end: 20030825
  4. HALCION [Suspect]
     Indication: SLEEP DISORDER
     Dosage: 0.5 MG
     Route: 065
     Dates: end: 20030825
  5. EURODIN [Suspect]
     Indication: SLEEP DISORDER
     Dosage: 2 MG
     Route: 065
     Dates: end: 20030825
  6. BENOZIL [Suspect]
     Indication: SLEEP DISORDER
     Dosage: 15 MG
     Route: 065
     Dates: end: 20030825
  7. LENDORM [Concomitant]
     Indication: SLEEP DISORDER
     Dosage: 0.25 MG
     Route: 048
     Dates: start: 20030825, end: 20030829

REACTIONS (2)
  - DELIRIUM [None]
  - DRUG WITHDRAWAL SYNDROME [None]
